FAERS Safety Report 9928906 (Version 1)
Quarter: 2014Q1

REPORT INFORMATION
  Report Type: Spontaneous
  Country: AU (occurrence: None)
  Receive Date: 20140225
  Receipt Date: 20140225
  Transmission Date: 20141002
  Serious: Yes (Hospitalization)
  Sender: FDA-Public Use
  Company Number: 2014P1001303

PATIENT
  Age: 41 Year
  Sex: Male

DRUGS (5)
  1. FLUOXETINE [Suspect]
     Route: 048
  2. QUETIAPINE [Suspect]
     Route: 048
  3. CARBAMAZEPINE [Suspect]
     Route: 048
  4. SODIUM VALPROATE [Suspect]
     Route: 048
  5. OXAZEPAM [Suspect]
     Route: 048

REACTIONS (5)
  - Toxicity to various agents [None]
  - Distributive shock [None]
  - Metabolic acidosis [None]
  - Pneumonia aspiration [None]
  - Exposure via ingestion [None]
